FAERS Safety Report 4664767-X (Version None)
Quarter: 2005Q2

REPORT INFORMATION
  Report Type: 
  Country: None (occurrence: None)
  Receive Date: 20050516
  Receipt Date: 20050429
  Transmission Date: 20051028
  Serious: Yes (Other)
  Sender: FDA-Public Use
  Company Number: PHBS2005ES04941

PATIENT
  Sex: Male

DRUGS (2)
  1. VISUDYNE [Suspect]
     Indication: MACULAR DEGENERATION
  2. VISUDYNE [Suspect]
     Indication: MYOPIA

REACTIONS (1)
  - LEUKAEMIA [None]
